FAERS Safety Report 22785028 (Version 2)
Quarter: 2024Q2

REPORT INFORMATION
  Report Type: Spontaneous
  Country: US (occurrence: US)
  Receive Date: 20230804
  Receipt Date: 20240504
  Transmission Date: 20240716
  Serious: Yes (Other)
  Sender: FDA-Public Use
  Company Number: US-PIRAMAL CRITICAL CARE LIMITED-2023-PPL-000167

PATIENT

DRUGS (1)
  1. GABLOFEN [Suspect]
     Active Substance: BACLOFEN
     Indication: Product used for unknown indication
     Dosage: 521.2 INTERPRETED AS 521.2 MICROGRAMS/DAY
     Route: 037

REACTIONS (2)
  - Cachexia [Recovered/Resolved]
  - Muscle spasticity [Recovered/Resolved]
